FAERS Safety Report 23090488 (Version 7)
Quarter: 2024Q3

REPORT INFORMATION
  Report Type: Spontaneous
  Country: US (occurrence: US)
  Receive Date: 20231020
  Receipt Date: 20240828
  Transmission Date: 20241016
  Serious: Yes (Hospitalization)
  Sender: PFIZER
  Company Number: US-PFIZER INC-PV202300172417

PATIENT
  Age: 61 Year
  Sex: Female

DRUGS (27)
  1. IBRANCE [Suspect]
     Active Substance: PALBOCICLIB
     Indication: Breast cancer female
     Dosage: TAKE 1 TABLET ON DAYS 1-21 OF A 28 DAY CYCLE TAKE WITH OR WITHOUT FOOD
     Route: 048
     Dates: start: 20231012
  2. ANASTROZOLE [Concomitant]
     Active Substance: ANASTROZOLE
     Dosage: 1 MG
  3. AMITRIPTYLINE [Concomitant]
     Active Substance: AMITRIPTYLINE
     Dosage: UNK
  4. BISACODYL [Concomitant]
     Active Substance: BISACODYL
     Dosage: UNK
  5. CANNABIDIOL [Concomitant]
     Active Substance: CANNABIDIOL
     Dosage: UNK
  6. CLINDAMYCIN [Concomitant]
     Active Substance: CLINDAMYCIN
     Dosage: 1 %
  7. DEXLANSOPRAZOLE [Concomitant]
     Active Substance: DEXLANSOPRAZOLE
     Dosage: UNK
  8. DICLOFENAC [Concomitant]
     Active Substance: DICLOFENAC
     Dosage: 1.3 %
  9. DULOXETINE [Concomitant]
     Active Substance: DULOXETINE
     Dosage: UNK
  10. EUCERIN [Concomitant]
     Active Substance: ENSULIZOLE\EUCERIN\OCTINOXATE\OCTISALATE\TITANIUM DIOXIDE\ZINC OXIDE
     Dosage: UNK
  11. EXEMESTANE [Concomitant]
     Active Substance: EXEMESTANE
     Dosage: UNK
  12. FERROUS SULFATE [Concomitant]
     Active Substance: FERROUS SULFATE
     Dosage: UNK
  13. FLUTICASONE [Concomitant]
     Active Substance: FLUTICASONE
     Dosage: 44 UG
  14. GABAPENTIN [Concomitant]
     Active Substance: GABAPENTIN
     Dosage: UNK
  15. LANTUS SOLOSTAR [Concomitant]
     Active Substance: INSULIN GLARGINE
     Dosage: 100/ML
  16. LEVOFLOXACIN [Concomitant]
     Active Substance: LEVOFLOXACIN
     Dosage: UNK
  17. LIDOCAINE [Concomitant]
     Active Substance: LIDOCAINE
     Dosage: PAD 5%
  18. NAPROXEN [Concomitant]
     Active Substance: NAPROXEN
     Dosage: UNK
  19. NOVOLOG [Concomitant]
     Active Substance: INSULIN ASPART
     Dosage: UNK
  20. OXYCODONE [Concomitant]
     Active Substance: OXYCODONE
     Dosage: UNK
  21. PANTOPRAZOLE [Concomitant]
     Active Substance: PANTOPRAZOLE
     Dosage: UNK
  22. PERCOCET [Concomitant]
     Active Substance: ACETAMINOPHEN\OXYCODONE HYDROCHLORIDE
     Dosage: UNK (5-325 MG)
  23. PROAIR HFA [Concomitant]
     Active Substance: ALBUTEROL SULFATE
     Dosage: UNK
  24. SENNOSIDES [Concomitant]
     Active Substance: SENNOSIDES
     Dosage: UNK
  25. TOPIRAMATE [Concomitant]
     Active Substance: TOPIRAMATE
     Dosage: UNK
  26. TRAZODONE [Concomitant]
     Active Substance: TRAZODONE HYDROCHLORIDE
     Dosage: UNK
  27. TYLENOL [Concomitant]
     Active Substance: ACETAMINOPHEN
     Dosage: UNK

REACTIONS (6)
  - Influenza [Unknown]
  - Hyperhidrosis [Not Recovered/Not Resolved]
  - Peripheral swelling [Unknown]
  - Diarrhoea [Unknown]
  - Fatigue [Not Recovered/Not Resolved]
  - White blood cell count decreased [Not Recovered/Not Resolved]

NARRATIVE: CASE EVENT DATE: 20230101
